FAERS Safety Report 10534243 (Version 2)
Quarter: 2014Q4

REPORT INFORMATION
  Report Type: Spontaneous
  Country: DE (occurrence: DE)
  Receive Date: 20141022
  Receipt Date: 20141022
  Transmission Date: 20150529
  Serious: Yes (Other)
  Sender: FDA-Public Use
  Company Number: DE-ASTELLAS-2014EU012621

PATIENT
  Age: 42 Year
  Sex: Female
  Weight: 60 kg

DRUGS (2)
  1. PROTOPIC [Suspect]
     Active Substance: TACROLIMUS
     Indication: DERMATITIS ATOPIC
     Dosage: UNK, TWICE DAILY FOR 10 DAYS
     Route: 061
     Dates: start: 201407
  2. PROTOPIC [Suspect]
     Active Substance: TACROLIMUS
     Indication: NEURODERMATITIS

REACTIONS (6)
  - Erythema [Unknown]
  - Pruritus [Unknown]
  - Hypersensitivity [Unknown]
  - Rash pustular [Unknown]
  - Skin burning sensation [Unknown]
  - Condition aggravated [Unknown]
